FAERS Safety Report 6149132-0 (Version None)
Quarter: 2009Q2

REPORT INFORMATION
  Report Type: 
  Country: None (occurrence: None)
  Receive Date: 20090409
  Receipt Date: 20090331
  Transmission Date: 20091009
  Serious: Yes (Death)
  Sender: FDA-Public Use
  Company Number: US-JNJFOC-20090400520

PATIENT
  Sex: Female

DRUGS (1)
  1. REMICADE [Suspect]
     Indication: PSORIASIS
     Dosage: A COUPLE DOSES
     Route: 042

REACTIONS (1)
  - METASTATIC NEOPLASM [None]
